FAERS Safety Report 19710477 (Version 3)
Quarter: 2022Q2

REPORT INFORMATION
  Report Type: Report from Study
  Country: US (occurrence: US)
  Receive Date: 20210817
  Receipt Date: 20220527
  Transmission Date: 20220721
  Serious: No
  Sender: FDA-Public Use
  Company Number: US-IPSEN BIOPHARMACEUTICALS, INC.-2021-19837

PATIENT
  Age: 58 Year
  Sex: Female

DRUGS (1)
  1. SOMATULINE DEPOT [Suspect]
     Active Substance: LANREOTIDE ACETATE
     Indication: Carcinoid tumour of the small bowel
     Dosage: 120MG EVERY 4 WEEKS (INJECTION SITE: BUTTOCKS)
     Route: 058
     Dates: start: 20210602

REACTIONS (11)
  - Headache [Not Recovered/Not Resolved]
  - Nausea [Recovered/Resolved]
  - Alopecia [Recovering/Resolving]
  - Vomiting [Recovered/Resolved]
  - Nausea [Recovering/Resolving]
  - Emotional disorder [Recovering/Resolving]
  - Blepharospasm [Recovered/Resolved]
  - Injection site nodule [Recovering/Resolving]
  - Glycosylated haemoglobin increased [Recovering/Resolving]
  - Abdominal pain upper [Recovering/Resolving]
  - Diarrhoea [Recovered/Resolved]

NARRATIVE: CASE EVENT DATE: 20210101
